FAERS Safety Report 13037758 (Version 1)
Quarter: 2016Q4

REPORT INFORMATION
  Report Type: Spontaneous
  Country: GB (occurrence: GB)
  Receive Date: 20161217
  Receipt Date: 20161217
  Transmission Date: 20170207
  Serious: Yes (Other)
  Sender: FDA-Public Use
  Company Number: GB-ASTRAZENECA-2016SF30988

PATIENT
  Age: 69 Year
  Sex: Female
  Weight: 76 kg

DRUGS (6)
  1. ALDARA [Concomitant]
     Active Substance: IMIQUIMOD
     Dosage: USE MONDAY TO FRIDAY FOR 6 WEEKS AS DIRECTED BY DERMATOLOGY
     Dates: start: 20161124, end: 20161125
  2. LOSARTAN. [Concomitant]
     Active Substance: LOSARTAN
     Dates: start: 20150921
  3. ANASTROZOLE. [Suspect]
     Active Substance: ANASTROZOLE
     Route: 048
     Dates: start: 20160330
  4. ATORVASTATIN [Concomitant]
     Active Substance: ATORVASTATIN
     Dates: start: 20150921
  5. KETOCONAZOLE. [Concomitant]
     Active Substance: KETOCONAZOLE
     Dosage: APPLY 2-3 TIMES A WEEK FOR 4 WEEKS
     Dates: start: 20161004, end: 20161101
  6. LOCERYL [Concomitant]
     Active Substance: AMOROLFINE HYDROCHLORIDE
     Dosage: APPLY AS DIRECTED
     Dates: start: 20160421

REACTIONS (3)
  - Alopecia [Recovered/Resolved]
  - Rash [Recovered/Resolved]
  - Depressed mood [Recovered/Resolved]

NARRATIVE: CASE EVENT DATE: 20161130
